FAERS Safety Report 4636571-X (Version None)
Quarter: 2005Q2

REPORT INFORMATION
  Report Type: 
  Country: None (occurrence: None)
  Receive Date: 20050414
  Receipt Date: 20050411
  Transmission Date: 20051028
  Serious: Yes (Death)
  Sender: FDA-Public Use
  Company Number: 2005-UK-00329UK

PATIENT
  Sex: Male

DRUGS (4)
  1. ATROVENT [Suspect]
     Route: 055
  2. SALBUTAMOL (SALBUTAMOL) (HOL) [Concomitant]
  3. PERINDOPRIL (PERINDOPRIL) (NR) [Concomitant]
  4. SYMBICORT (NR) [Concomitant]

REACTIONS (1)
  - CHRONIC OBSTRUCTIVE PULMONARY DISEASE [None]
